FAERS Safety Report 7536793 (Version 3)
Quarter: 2012Q4

REPORT INFORMATION
  Report Type: 
  Country: US (occurrence: US)
  Receive Date: 20100811
  Receipt Date: 20120927
  Transmission Date: 20130627
  Serious: Yes (Hospitalization, Disabling, Other)
  Sender: FDA-Public Use
  Company Number: US-ELI_LILLY_AND_COMPANY-US_0509122330

PATIENT
  Sex: Female
  Weight: 77.1 kg

DRUGS (6)
  1. ZYPREXA [Suspect]
     Indication: DEPRESSION
     Dosage: UNK, unknown
     Dates: start: 1998
  2. TEGRETOL [Concomitant]
  3. LAMICTAL [Concomitant]
  4. DEPAKOTE [Concomitant]
  5. LEVETIRACETAM [Concomitant]
     Dosage: UNK
     Dates: end: 2008
  6. FOLIC ACID [Concomitant]

REACTIONS (27)
  - Diabetic ketoacidosis [Unknown]
  - Convulsion [Unknown]
  - Glycosylated haemoglobin increased [Unknown]
  - Pancreatitis [Unknown]
  - Blood glucose increased [Unknown]
  - Loss of consciousness [Unknown]
  - Diabetes mellitus [Unknown]
  - Infertility [Unknown]
  - Gastritis [Unknown]
  - Protein urine [Unknown]
  - Limb discomfort [Unknown]
  - Hypoaesthesia [Unknown]
  - Tinea pedis [Unknown]
  - Diabetic foot [Unknown]
  - Diabetic neuropathy [Unknown]
  - Fungal infection [Unknown]
  - Weight decreased [Unknown]
  - Visual acuity reduced [Unknown]
  - Visual field defect [Unknown]
  - Dyspnoea [Unknown]
  - Gastrointestinal infection [Unknown]
  - Wound [Unknown]
  - Fall [Unknown]
  - Alopecia [Unknown]
  - Off label use [Unknown]
  - Hypothyroidism [Unknown]
  - Hypertension [Unknown]
